FAERS Safety Report 6638277-4 (Version None)
Quarter: 2010Q1

REPORT INFORMATION
  Report Type: 
  Country: None (occurrence: None)
  Receive Date: 20100312
  Receipt Date: 20100226
  Transmission Date: 20100710
  Serious: Yes (Hospitalization, Other)
  Sender: FDA-Public Use
  Company Number: IMP_04922_2010

PATIENT
  Age: 23 Year
  Sex: Female

DRUGS (4)
  1. BUPROPION HCL [Suspect]
     Indication: APATHY
     Dosage: 150 MG QD, 150 MG BID
     Dates: start: 20070101
  2. BUPROPION HCL [Suspect]
     Indication: ASTHENIA
     Dosage: 150 MG QD, 150 MG BID
     Dates: start: 20070101
  3. BUPROPION HCL [Suspect]
     Indication: APATHY
     Dosage: 150 MG QD, 150 MG BID
     Dates: start: 20070101
  4. BUPROPION HCL [Suspect]
     Indication: ASTHENIA
     Dosage: 150 MG QD, 150 MG BID
     Dates: start: 20070101

REACTIONS (12)
  - AFFECT LABILITY [None]
  - AUTONOMIC NERVOUS SYSTEM IMBALANCE [None]
  - DRUG ABUSE [None]
  - EDUCATIONAL PROBLEM [None]
  - GENERAL PHYSICAL HEALTH DETERIORATION [None]
  - INCORRECT ROUTE OF DRUG ADMINISTRATION [None]
  - MENTAL DISORDER [None]
  - PANIC ATTACK [None]
  - RHINALGIA [None]
  - SOCIAL PROBLEM [None]
  - TACHYCARDIA [None]
  - WRONG TECHNIQUE IN DRUG USAGE PROCESS [None]
